FAERS Safety Report 18374725 (Version 3)
Quarter: 2020Q4

REPORT INFORMATION
  Report Type: Report from Study
  Country: CO (occurrence: CO)
  Receive Date: 20201013
  Receipt Date: 20201111
  Transmission Date: 20210114
  Serious: Yes (Other)
  Sender: FDA-Public Use
  Company Number: CO-TAKEDA-2019TUS028150

PATIENT
  Age: 31 Year
  Sex: Female
  Weight: 63 kg

DRUGS (4)
  1. IRON [Concomitant]
     Active Substance: IRON
     Dosage: UNK
     Route: 048
  2. VEDOLIZUMAB [Suspect]
     Active Substance: VEDOLIZUMAB
     Indication: CROHN^S DISEASE
     Dosage: 300 MILLIGRAM
     Route: 042
     Dates: start: 20181004
  3. CALCIUM [Concomitant]
     Active Substance: CALCIUM
     Dosage: UNK
     Route: 048
  4. VEDOLIZUMAB [Suspect]
     Active Substance: VEDOLIZUMAB
     Dosage: 300 MILLIGRAM, Q4WEEKS
     Route: 042

REACTIONS (12)
  - Polymerase chain reaction positive [Unknown]
  - Nausea [Unknown]
  - Abdominal pain [Unknown]
  - Vomiting [Unknown]
  - Diarrhoea [Unknown]
  - Dizziness [Unknown]
  - Wisdom teeth removal [Recovered/Resolved]
  - Off label use [Unknown]
  - Crohn^s disease [Recovering/Resolving]
  - Neutrophilia [Unknown]
  - Leukocytosis [Unknown]
  - Product dose omission issue [Unknown]

NARRATIVE: CASE EVENT DATE: 20190425
